FAERS Safety Report 11249473 (Version 1)
Quarter: 2015Q3

REPORT INFORMATION
  Report Type: Spontaneous
  Country: US (occurrence: US)
  Receive Date: 20150708
  Receipt Date: 20150708
  Transmission Date: 20151125
  Serious: Yes (Hospitalization, Other)
  Sender: FDA-Public Use
  Company Number: US-ELI_LILLY_AND_COMPANY-US201004008662

PATIENT
  Age: 65 Year
  Sex: Female
  Weight: 111.57 kg

DRUGS (15)
  1. ASA [Concomitant]
     Active Substance: ASPIRIN
  2. GEMFIBROZIL. [Concomitant]
     Active Substance: GEMFIBROZIL
  3. CISPLATIN. [Concomitant]
     Active Substance: CISPLATIN
     Dosage: 75 D/F, UNK
     Route: 042
     Dates: start: 20100416
  4. PREDNISONE. [Concomitant]
     Active Substance: PREDNISONE
  5. NEULASTA [Concomitant]
     Active Substance: PEGFILGRASTIM
  6. ADVAIR HFA [Concomitant]
     Active Substance: FLUTICASONE PROPIONATE\SALMETEROL XINAFOATE
  7. ALLOPURINOL. [Concomitant]
     Active Substance: ALLOPURINOL
  8. FLONASE [Concomitant]
     Active Substance: FLUTICASONE PROPIONATE
  9. VITAMIN B12 [Concomitant]
     Active Substance: CYANOCOBALAMIN
  10. LIPITOR [Concomitant]
     Active Substance: ATORVASTATIN CALCIUM
  11. AZMACORT [Concomitant]
     Active Substance: TRIAMCINOLONE ACETONIDE
  12. DEXAMETHASONE. [Concomitant]
     Active Substance: DEXAMETHASONE
  13. ALIMTA [Suspect]
     Active Substance: PEMETREXED DISODIUM
     Indication: LUNG ADENOCARCINOMA
     Dosage: 500 D/F, UNK
     Route: 042
     Dates: start: 20100416, end: 20100416
  14. ATENOLOL. [Concomitant]
     Active Substance: ATENOLOL
  15. FOLIC ACID. [Concomitant]
     Active Substance: FOLIC ACID

REACTIONS (6)
  - Staphylococcal sepsis [Unknown]
  - Catheter site infection [Unknown]
  - Mucosal inflammation [Unknown]
  - Diarrhoea [Unknown]
  - Neutropenic sepsis [Unknown]
  - Pancytopenia [Recovering/Resolving]

NARRATIVE: CASE EVENT DATE: 20100423
